FAERS Safety Report 8283852-7 (Version None)
Quarter: 2012Q2

REPORT INFORMATION
  Report Type: 
  Country: None (occurrence: None)
  Receive Date: 20120413
  Receipt Date: 20111101
  Transmission Date: 20120825
  Serious: No
  Sender: FDA-Public Use
  Company Number: US-ASTRAZENECA-2011SE66202

PATIENT
  Age: 69 Year
  Sex: Male

DRUGS (2)
  1. NEXIUM [Suspect]
     Dosage: ONE CAPSULE A DAY
     Route: 048
  2. NEXIUM [Suspect]
     Dosage: TWO CAPSULE A DAY
     Route: 048

REACTIONS (4)
  - INAPPROPRIATE SCHEDULE OF DRUG ADMINISTRATION [None]
  - BARRETT'S OESOPHAGUS [None]
  - MALAISE [None]
  - DRUG DOSE OMISSION [None]
